FAERS Safety Report 11313370 (Version 3)
Quarter: 2015Q3

REPORT INFORMATION
  Report Type: Report from Study
  Country: NL (occurrence: NL)
  Receive Date: 20150727
  Receipt Date: 20150901
  Transmission Date: 20151125
  Serious: Yes (Other)
  Sender: FDA-Public Use
  Company Number: NL-BAXALTA-2015BLT000517

PATIENT

DRUGS (3)
  1. KIOVIG [Suspect]
     Active Substance: HUMAN IMMUNOGLOBULIN G
     Indication: GUILLAIN-BARRE SYNDROME
     Dosage: 4X 10 G, 1X A WEEK
     Route: 042
  2. KIOVIG [Suspect]
     Active Substance: HUMAN IMMUNOGLOBULIN G
     Dosage: 4X 10 G, UNK
     Route: 042
     Dates: start: 20150713
  3. KIOVIG [Suspect]
     Active Substance: HUMAN IMMUNOGLOBULIN G
     Dosage: 4X 10 G, UNK
     Route: 042
     Dates: start: 20150706

REACTIONS (3)
  - Rib fracture [Unknown]
  - Ligament sprain [Unknown]
  - Fall [Unknown]

NARRATIVE: CASE EVENT DATE: 20150707
